FAERS Safety Report 5162052-3 (Version None)
Quarter: 2006Q4

REPORT INFORMATION
  Report Type: 
  Country: None (occurrence: None)
  Receive Date: 20061121
  Receipt Date: 20061109
  Transmission Date: 20070319
  Serious: Yes (Hospitalization)
  Sender: FDA-Public Use
  Company Number: POMP-10837

PATIENT
  Age: 10 Month
  Sex: Female

DRUGS (2)
  1. ALPHA GLUCOSIDES                  (HUMAN, RECOMBINANT, CHO CELLS, GEN [Suspect]
     Indication: GLYCOGEN STORAGE DISEASE TYPE II
     Dosage: 20 MG/KG Q2WKS IV
     Route: 042
     Dates: start: 20051028, end: 20060301
  2. DIURETICS [Concomitant]

REACTIONS (5)
  - CARDIAC DISORDER [None]
  - DEPRESSED LEVEL OF CONSCIOUSNESS [None]
  - SKIN DISCOLOURATION [None]
  - VIRAL UPPER RESPIRATORY TRACT INFECTION [None]
  - WEIGHT INCREASED [None]
